FAERS Safety Report 18560038 (Version 1)
Quarter: 2020Q4

REPORT INFORMATION
  Report Type: Spontaneous
  Country: GB (occurrence: GB)
  Receive Date: 20201127
  Receipt Date: 20201127
  Transmission Date: 20210114
  Serious: Yes (Other)
  Sender: FDA-Public Use
  Company Number: None

PATIENT
  Age: 49 Year
  Sex: Female
  Weight: 125 kg

DRUGS (1)
  1. INEOS HAND SANITIZER [Suspect]
     Active Substance: ALCOHOL
     Indication: COVID-19

REACTIONS (2)
  - Breath odour [None]
  - Vision blurred [None]

NARRATIVE: CASE EVENT DATE: 20200911
